FAERS Safety Report 5487023-9 (Version None)
Quarter: 2007Q4

REPORT INFORMATION
  Report Type: 
  Country: None (occurrence: None)
  Receive Date: 20071016
  Receipt Date: 20071011
  Transmission Date: 20080405
  Serious: Yes (Other)
  Sender: FDA-Public Use
  Company Number: US-BRISTOL-MYERS SQUIBB COMPANY-13939418

PATIENT
  Age: 38 Year
  Sex: Female

DRUGS (4)
  1. ORENCIA [Suspect]
     Indication: RHEUMATOID ARTHRITIS
     Route: 042
  2. NOVOCAIN [Suspect]
  3. PREDNISONE [Concomitant]
  4. CELEBREX [Concomitant]

REACTIONS (1)
  - CONVULSION [None]
